FAERS Safety Report 9123751 (Version 1)
Quarter: 2013Q1

REPORT INFORMATION
  Report Type: Spontaneous
  Country: KR (occurrence: KR)
  Receive Date: 20130114
  Receipt Date: 20130114
  Transmission Date: 20140127
  Serious: Yes (Death)
  Sender: FDA-Public Use
  Company Number: KR-JNJFOC-20130106675

PATIENT
  Sex: Female

DRUGS (4)
  1. FINIBAX [Suspect]
     Indication: PNEUMONIA
     Route: 041
     Dates: start: 20130103
  2. EPILIM [Concomitant]
     Route: 065
     Dates: start: 20121229, end: 20130107
  3. METHYLPREDNISOLONE [Concomitant]
     Dosage: 125 MG/V
     Route: 065
     Dates: start: 20121228, end: 20130107
  4. AVELOX [Concomitant]
     Dosage: 400 MG 250 ML/BTL
     Route: 065
     Dates: start: 20121227, end: 20130107

REACTIONS (2)
  - Septic shock [Fatal]
  - Cardiac failure [Fatal]
